FAERS Safety Report 6065653-3 (Version None)
Quarter: 2009Q1

REPORT INFORMATION
  Report Type: 
  Country: None (occurrence: None)
  Receive Date: 20090130
  Receipt Date: 20090122
  Transmission Date: 20090719
  Serious: Yes (Other)
  Sender: FDA-Public Use
  Company Number: POMP-1000469

PATIENT
  Age: 4 Year
  Sex: Female

DRUGS (2)
  1. MYOZYME [Suspect]
     Indication: GLYCOGEN STORAGE DISEASE TYPE II
     Dosage: 20 MG/KG, Q2W, INTRAVENOUS
     Route: 042
     Dates: start: 20050802
  2. PNEUMOCOCCAL CONJUGATE VACCINE [Concomitant]

REACTIONS (12)
  - ATELECTASIS [None]
  - BLOOD IMMUNOGLOBULIN G INCREASED [None]
  - CARDIAC ARREST [None]
  - ESCHERICHIA URINARY TRACT INFECTION [None]
  - HYPOKALAEMIA [None]
  - HYPOXIA [None]
  - IMPAIRED GASTRIC EMPTYING [None]
  - LEUKOPENIA [None]
  - LOBAR PNEUMONIA [None]
  - RESPIRATORY FAILURE [None]
  - UPPER GASTROINTESTINAL HAEMORRHAGE [None]
  - URINE OUTPUT DECREASED [None]
